FAERS Safety Report 9220863 (Version 1)
Quarter: 2013Q2

REPORT INFORMATION
  Report Type: Spontaneous
  Country: GB (occurrence: GB)
  Receive Date: 20130409
  Receipt Date: 20130409
  Transmission Date: 20140414
  Serious: Yes (Other)
  Sender: FDA-Public Use
  Company Number: GB-TEVA-396563ISR

PATIENT
  Sex: Female

DRUGS (6)
  1. FOLIC ACID [Suspect]
  2. LANSOPRAZOLE [Suspect]
  3. HYDROXYCHLOROQUINE SULFATE [Suspect]
     Dosage: 2 DOSAGE FORMS DAILY;
  4. ETANERCEPT [Suspect]
     Indication: ARTHRITIS
     Dates: start: 201111
  5. LYRICA [Suspect]
     Dosage: 150 MILLIGRAM DAILY;
  6. METHOTREXATE [Concomitant]
     Route: 058

REACTIONS (5)
  - Arthritis [Recovering/Resolving]
  - Nervous system disorder [Recovering/Resolving]
  - Inflammation [Recovering/Resolving]
  - Asthenia [Recovering/Resolving]
  - Gastrointestinal motility disorder [Recovering/Resolving]
